FAERS Safety Report 6151732-9 (Version None)
Quarter: 2009Q2

REPORT INFORMATION
  Report Type: 
  Country: None (occurrence: None)
  Receive Date: 20090410
  Receipt Date: 20090403
  Transmission Date: 20091009
  Serious: Yes (Hospitalization)
  Sender: FDA-Public Use
  Company Number: A0776009A

PATIENT
  Age: 70 Year
  Sex: Male
  Weight: 98.6 kg

DRUGS (2)
  1. AVANDIA [Suspect]
     Indication: DIABETES MELLITUS
     Dosage: 8MG PER DAY
     Route: 048
     Dates: start: 20060601, end: 20070601
  2. METOPROLOL [Concomitant]
     Dates: start: 20060101

REACTIONS (3)
  - HEART INJURY [None]
  - MOBILITY DECREASED [None]
  - MYOCARDIAL INFARCTION [None]
